FAERS Safety Report 5624800-5 (Version None)
Quarter: 2008Q1

REPORT INFORMATION
  Report Type: 
  Country: None (occurrence: None)
  Receive Date: 20080213
  Receipt Date: 20080201
  Transmission Date: 20080703
  Serious: Yes (Hospitalization)
  Sender: FDA-Public Use
  Company Number: JP-ROCHE-542087

PATIENT
  Age: 45 Year
  Sex: Female

DRUGS (4)
  1. TAMIFLU [Suspect]
     Indication: INFLUENZA
     Route: 048
     Dates: start: 20080109
  2. TAMIFLU [Suspect]
     Dosage: DOSAGE INCREASED
     Route: 048
     Dates: start: 20080110, end: 20080110
  3. FEROTYM [Concomitant]
     Route: 048
     Dates: start: 20060327
  4. CALONAL [Concomitant]
     Dosage: TAKEN AS NEEDED. FORM: FINE GRANULES.
     Route: 048
     Dates: start: 20080110

REACTIONS (3)
  - HEPATIC FUNCTION ABNORMAL [None]
  - LEUKOPENIA [None]
  - THROMBOCYTOPENIA [None]
